FAERS Safety Report 18459586 (Version 1)
Quarter: 2020Q4

REPORT INFORMATION
  Report Type: Spontaneous
  Country: CN (occurrence: CN)
  Receive Date: 20201103
  Receipt Date: 20201103
  Transmission Date: 20210114
  Serious: Yes (Other)
  Sender: FDA-Public Use
  Company Number: CN-ROCHE-2706882

PATIENT
  Sex: Female

DRUGS (4)
  1. CARBOPLATIN. [Concomitant]
     Active Substance: CARBOPLATIN
     Indication: HER2 POSITIVE BREAST CANCER
     Route: 065
     Dates: start: 202008
  2. PERJETA [Suspect]
     Active Substance: PERTUZUMAB
     Indication: HER2 POSITIVE BREAST CANCER
     Route: 065
     Dates: start: 202008
  3. HERCEPTIN [Suspect]
     Active Substance: TRASTUZUMAB
     Indication: HER2 POSITIVE BREAST CANCER
     Route: 065
     Dates: start: 202008
  4. DOCETAXEL. [Concomitant]
     Active Substance: DOCETAXEL
     Indication: HER2 POSITIVE BREAST CANCER
     Route: 065
     Dates: start: 202008

REACTIONS (1)
  - Myelosuppression [Unknown]
